FAERS Safety Report 7646022-9 (Version None)
Quarter: 2011Q3

REPORT INFORMATION
  Report Type: 
  Country: None (occurrence: None)
  Receive Date: 20110731
  Receipt Date: 20110718
  Transmission Date: 20111222
  Serious: Yes (Hospitalization)
  Sender: FDA-Public Use
  Company Number: GB-MYLANLABS-2011S1012197

PATIENT
  Age: 43 Year
  Sex: Female
  Weight: 67 kg

DRUGS (4)
  1. CITALOPRAM HYDROBROMIDE [Suspect]
     Indication: DEPRESSION
     Dates: start: 20110407
  2. CANDESARTAN CILEXETIL [Concomitant]
     Dates: start: 20110404
  3. CITALOPRAM HYDROBROMIDE [Suspect]
  4. CANDESARTAN CILEXETIL [Concomitant]
     Indication: PRODUCT USED FOR UNKNOWN INDICATION
     Dates: start: 20110204, end: 20110304

REACTIONS (3)
  - AGITATION [None]
  - ACUTE PSYCHOSIS [None]
  - MALAISE [None]
